FAERS Safety Report 9198764 (Version 1)
Quarter: 2013Q1

REPORT INFORMATION
  Report Type: Spontaneous
  Country: US (occurrence: US)
  Receive Date: 20130329
  Receipt Date: 20130329
  Transmission Date: 20140127
  Serious: No
  Sender: FDA-Public Use
  Company Number: US-TEVA-395278USA

PATIENT
  Age: 18 Year
  Sex: Female
  Weight: 67.19 kg

DRUGS (3)
  1. PLAN B ONE-STEP [Suspect]
     Indication: POST COITAL CONTRACEPTION
     Dosage: 1.5 MILLIGRAM DAILY;
     Route: 048
     Dates: start: 20130323, end: 20130323
  2. ERYTHROMYCIN [Concomitant]
     Indication: PRODUCT USED FOR UNKNOWN INDICATION
     Route: 048
  3. ORAL CONTRACEPTION [Concomitant]
     Indication: CONTRACEPTION

REACTIONS (2)
  - Pelvic pain [Recovered/Resolved]
  - Menstruation irregular [Not Recovered/Not Resolved]
